FAERS Safety Report 5534493-3 (Version None)
Quarter: 2007Q4

REPORT INFORMATION
  Report Type: 
  Country: None (occurrence: None)
  Receive Date: 20071205
  Receipt Date: 20071203
  Transmission Date: 20080405
  Serious: Yes (Other)
  Sender: FDA-Public Use
  Company Number: NL-BRISTOL-MYERS SQUIBB COMPANY-14002315

PATIENT
  Sex: Female

DRUGS (7)
  1. EFAVIRENZ [Suspect]
     Indication: HIV INFECTION
  2. STAVUDINE [Suspect]
     Indication: HIV INFECTION
  3. DIDANOSINE [Suspect]
     Indication: HIV INFECTION
  4. LOPINAVIR [Suspect]
     Indication: HIV INFECTION
  5. RITONAVIR [Suspect]
     Indication: HIV INFECTION
  6. TENOFOVIR DISOPROXIL FUMARATE [Suspect]
     Indication: HIV INFECTION
  7. LAMIVUDINE [Suspect]
     Indication: HIV INFECTION

REACTIONS (2)
  - PREGNANCY [None]
  - PREMATURE RUPTURE OF MEMBRANES [None]
